FAERS Safety Report 19520143 (Version 2)
Quarter: 2021Q3

REPORT INFORMATION
  Report Type: Spontaneous
  Country: US (occurrence: US)
  Receive Date: 20210712
  Receipt Date: 20210827
  Transmission Date: 20211014
  Serious: No
  Sender: FDA-Public Use
  Company Number: US-PFIZER INC-2021465978

PATIENT
  Age: 69 Year
  Sex: Female
  Weight: 56.25 kg

DRUGS (2)
  1. BOSULIF [Suspect]
     Active Substance: BOSUTINIB MONOHYDRATE
     Indication: CHRONIC MYELOID LEUKAEMIA
     Dosage: 100 MG, 1X/DAY
     Route: 048
  2. BOSULIF [Suspect]
     Active Substance: BOSUTINIB MONOHYDRATE
     Dosage: 200 MG, 1X/DAY

REACTIONS (6)
  - Diarrhoea [Unknown]
  - Eye disorder [Unknown]
  - Neoplasm progression [Unknown]
  - Malaise [Unknown]
  - Nervousness [Unknown]
  - Intentional product misuse [Unknown]
